FAERS Safety Report 24016803 (Version 1)
Quarter: 2024Q2

REPORT INFORMATION
  Report Type: Report from Study
  Country: US (occurrence: US)
  Receive Date: 20240626
  Receipt Date: 20240626
  Transmission Date: 20240715
  Serious: Yes (Other)
  Sender: FDA-Public Use
  Company Number: US-JNJFOC-20230335300

PATIENT
  Age: 29 Year
  Sex: Female

DRUGS (4)
  1. SIMPONI [Suspect]
     Active Substance: GOLIMUMAB
     Indication: Psoriasis
     Route: 058
     Dates: start: 20091103, end: 20100105
  2. REMICADE [Suspect]
     Active Substance: INFLIXIMAB
     Indication: Psoriasis
     Route: 041
     Dates: start: 20100113, end: 20100224
  3. REMICADE [Suspect]
     Active Substance: INFLIXIMAB
     Route: 041
     Dates: start: 20100421, end: 20100421
  4. REMICADE [Suspect]
     Active Substance: INFLIXIMAB
     Route: 041
     Dates: start: 20100701, end: 20100908

REACTIONS (6)
  - Clostridium difficile colitis [Unknown]
  - Optic neuritis [Unknown]
  - Conjunctivitis bacterial [Unknown]
  - Haematuria [Unknown]
  - Osteopenia [Unknown]
  - Uterine prolapse [Unknown]

NARRATIVE: CASE EVENT DATE: 20100301
